FAERS Safety Report 15507584 (Version 1)
Quarter: 2018Q4

REPORT INFORMATION
  Report Type: Spontaneous
  Country: IT (occurrence: IT)
  Receive Date: 20181016
  Receipt Date: 20181016
  Transmission Date: 20190205
  Serious: Yes (Disabling)
  Sender: FDA-Public Use
  Company Number: IT-ALLERGAN-1848998US

PATIENT
  Age: 84 Year
  Sex: Female

DRUGS (10)
  1. ARCOXIA [Concomitant]
     Active Substance: ETORICOXIB
     Route: 048
  2. DIBASE [Concomitant]
     Active Substance: CHOLECALCIFEROL
     Indication: OSTEOPOROSIS
     Route: 048
  3. RIOPAN [Concomitant]
     Route: 048
  4. LEXOTAN [Concomitant]
     Active Substance: BROMAZEPAM
     Indication: ANXIETY
  5. PERIDON [Concomitant]
     Active Substance: DOMPERIDONE
  6. MICROSER [Concomitant]
     Active Substance: BETAHISTINE HYDROCHLORIDE
  7. PEPTAZOL [Concomitant]
     Active Substance: PANTOPRAZOLE SODIUM
  8. RISEDRONATE SODIUM - BP [Suspect]
     Active Substance: RISEDRONATE SODIUM
     Indication: OSTEOPOROSIS
     Dosage: 35 MG, Q WEEK
     Route: 048
     Dates: start: 20020601, end: 20180628
  9. FOSTER [Concomitant]
     Active Substance: BECLOMETHASONE\FORMOTEROL
     Indication: ASTHMA
  10. CORDARONE [Concomitant]
     Active Substance: AMIODARONE HYDROCHLORIDE

REACTIONS (3)
  - Osteonecrosis of jaw [Not Recovered/Not Resolved]
  - Gingivitis [Not Recovered/Not Resolved]
  - Fistula [Not Recovered/Not Resolved]

NARRATIVE: CASE EVENT DATE: 20180608
